FAERS Safety Report 5065949-8 (Version None)
Quarter: 2006Q3

REPORT INFORMATION
  Report Type: 
  Country: None (occurrence: None)
  Receive Date: 20060728
  Receipt Date: 20060728
  Transmission Date: 20061208
  Serious: Yes (Hospitalization)
  Sender: FDA-Public Use
  Company Number: None

PATIENT
  Age: 74 Year
  Weight: 101 kg

DRUGS (13)
  1. ENOXAPARIN SODIUM [Suspect]
     Indication: DEEP VEIN THROMBOSIS
     Dosage: 100 MG SQ Q12H
     Dates: start: 20060330, end: 20060331
  2. ENOXAPARIN SODIUM [Suspect]
     Indication: PULMONARY EMBOLISM
     Dosage: 100 MG SQ Q12H
     Dates: start: 20060330, end: 20060331
  3. WARFARIN SODIUM [Suspect]
     Indication: DEEP VEIN THROMBOSIS
     Dosage: 5 MG PO DAILY
     Route: 048
     Dates: start: 20060330, end: 20060331
  4. WARFARIN SODIUM [Suspect]
     Indication: PULMONARY EMBOLISM
     Dosage: 5 MG PO DAILY
     Route: 048
     Dates: start: 20060330, end: 20060331
  5. ALLOPURINOL [Concomitant]
  6. ASPIRIN [Concomitant]
  7. COREG [Concomitant]
  8. EZETIMIBE [Concomitant]
  9. MEXILITINE [Concomitant]
  10. PREDNISONE [Concomitant]
  11. RAMIPRIL [Concomitant]
  12. ZOCOR [Concomitant]
  13. ALDACTONE [Concomitant]

REACTIONS (5)
  - CONDITION AGGRAVATED [None]
  - HAEMATOMA [None]
  - PLATELET COUNT DECREASED [None]
  - POST PROCEDURAL COMPLICATION [None]
  - WOUND HAEMORRHAGE [None]
